FAERS Safety Report 26098076 (Version 1)
Quarter: 2025Q4

REPORT INFORMATION
  Report Type: Spontaneous
  Country: KR (occurrence: KR)
  Receive Date: 20251127
  Receipt Date: 20251127
  Transmission Date: 20260117
  Serious: Yes (Other)
  Sender: ALEXION PHARMACEUTICALS
  Company Number: KR-ASTRAZENECA-202510ASI025650KR

PATIENT
  Age: 87 Year
  Sex: Male

DRUGS (3)
  1. LYNPARZA [Suspect]
     Active Substance: OLAPARIB
     Indication: Hormone-refractory prostate cancer
     Dosage: 300 MILLIGRAM, BID
     Dates: start: 202410
  2. LYNPARZA [Suspect]
     Active Substance: OLAPARIB
     Dosage: 250 MILLIGRAM, BID
  3. ABIRATERONE ACETATE [Suspect]
     Active Substance: ABIRATERONE ACETATE
     Indication: Hormone-refractory prostate cancer
     Dosage: UNK

REACTIONS (15)
  - Diabetes mellitus [Unknown]
  - Acute kidney injury [Unknown]
  - Leukopenia [Unknown]
  - Pulmonary oedema [Unknown]
  - Pneumonia [Unknown]
  - Delirium [Unknown]
  - Decreased appetite [Unknown]
  - Asthenia [Unknown]
  - Hypophagia [Unknown]
  - Influenza [Unknown]
  - Vomiting [Unknown]
  - Diarrhoea [Unknown]
  - Haematuria [Unknown]
  - Gait inability [Unknown]
  - Anaemia [Unknown]

NARRATIVE: CASE EVENT DATE: 20250101
